FAERS Safety Report 15261255 (Version 1)
Quarter: 2018Q3

REPORT INFORMATION
  Report Type: Spontaneous
  Country: US (occurrence: US)
  Receive Date: 20180809
  Receipt Date: 20180809
  Transmission Date: 20181010
  Serious: Yes (Hospitalization)
  Sender: FDA-Public Use
  Company Number: US-SHIRE-US201830006

PATIENT
  Sex: Male

DRUGS (1)
  1. GATTEX [Suspect]
     Active Substance: TEDUGLUTIDE\WATER
     Indication: SHORT-BOWEL SYNDROME
     Dosage: 0.3900 UNK, 1X/DAY:QD
     Route: 065
     Dates: start: 20180518

REACTIONS (2)
  - Hernia [Unknown]
  - Inappropriate schedule of drug administration [Unknown]
